FAERS Safety Report 19059987 (Version 1)
Quarter: 2021Q1

REPORT INFORMATION
  Report Type: Report from Study
  Country: US (occurrence: US)
  Receive Date: 20210326
  Receipt Date: 20210326
  Transmission Date: 20210420
  Serious: Yes (Other)
  Sender: FDA-Public Use
  Company Number: US-ASTRAZENECA-2021A187589

PATIENT
  Sex: Female

DRUGS (2)
  1. DAILY VITE [Concomitant]
     Active Substance: VITAMINS
  2. LYNPARZA [Suspect]
     Active Substance: OLAPARIB
     Indication: BREAST CANCER
     Route: 048
     Dates: start: 20191213

REACTIONS (2)
  - Metastases to stomach [Unknown]
  - Drug ineffective [Unknown]
